FAERS Safety Report 7554990-9 (Version None)
Quarter: 2011Q2

REPORT INFORMATION
  Report Type: 
  Country: None (occurrence: None)
  Receive Date: 20110617
  Receipt Date: 20110610
  Transmission Date: 20111010
  Serious: Yes (Other)
  Sender: FDA-Public Use
  Company Number: US-PFIZER INC-2011099309

PATIENT
  Sex: Female
  Weight: 61.2 kg

DRUGS (4)
  1. DEPO-PROVERA [Suspect]
     Indication: MIGRAINE
  2. PRILOSEC [Concomitant]
     Indication: GASTROOESOPHAGEAL REFLUX DISEASE
     Dosage: UNK
  3. IMITREX [Concomitant]
     Indication: MIGRAINE
     Dosage: UNK
  4. DEPO-PROVERA [Suspect]
     Indication: OFF LABEL USE
     Dosage: UNK
     Route: 030
     Dates: start: 20100101

REACTIONS (2)
  - PAIN [None]
  - COELIAC DISEASE [None]
